FAERS Safety Report 10902569 (Version 5)
Quarter: 2016Q3

REPORT INFORMATION
  Report Type: Report from Study
  Country: JP (occurrence: JP)
  Receive Date: 20150310
  Receipt Date: 20160822
  Transmission Date: 20161109
  Serious: Yes (Life-Threatening, Hospitalization, Other)
  Sender: FDA-Public Use
  Company Number: JP-SA-2015SA028570

PATIENT
  Age: 22 Year
  Sex: Male

DRUGS (2)
  1. EVOLTRA [Suspect]
     Active Substance: CLOFARABINE
     Indication: ACUTE LYMPHOCYTIC LEUKAEMIA
     Dosage: 50 MG/BODY
     Route: 042
     Dates: start: 20140730, end: 20140730
  2. EVOLTRA [Suspect]
     Active Substance: CLOFARABINE
     Indication: ACUTE LYMPHOCYTIC LEUKAEMIA
     Dosage: 50 MG/BODY/DAY
     Route: 042
     Dates: start: 20140726, end: 20140728

REACTIONS (9)
  - Stomatitis [Unknown]
  - White blood cell count decreased [Unknown]
  - Staphylococcal infection [Unknown]
  - Mouth swelling [Unknown]
  - Platelet count decreased [Recovered/Resolved with Sequelae]
  - Blood bilirubin increased [Recovered/Resolved]
  - Oral mucosal erythema [Unknown]
  - Chest pain [Recovering/Resolving]
  - Mucous membrane disorder [Not Recovered/Not Resolved]

NARRATIVE: CASE EVENT DATE: 20140727
